FAERS Safety Report 9803712 (Version 1)
Quarter: 2014Q1

REPORT INFORMATION
  Report Type: Spontaneous
  Country: US (occurrence: US)
  Receive Date: 20140108
  Receipt Date: 20140108
  Transmission Date: 20141002
  Serious: No
  Sender: FDA-Public Use
  Company Number: US-B.I. PHARMACEUTICALS,INC./RIDGEFIELD-2013-BI-43808BP

PATIENT
  Age: 56 Year
  Sex: Female
  Weight: 95 kg

DRUGS (14)
  1. SPIRIVA [Suspect]
     Indication: EMPHYSEMA
     Dosage: 18 MCG
     Route: 055
     Dates: start: 2009
  2. OXYBUTYNIN [Concomitant]
     Indication: HYPERTONIC BLADDER
     Dosage: 10 MG
     Route: 048
     Dates: start: 201311
  3. INSULIN 70/30 [Concomitant]
     Indication: DIABETES MELLITUS
     Dosage: FORMULATION: SUBCUTANEOUS; DAILY DOSE: 195 UNITS
     Route: 058
     Dates: start: 2009
  4. OMEPRAZOLE [Concomitant]
     Indication: DYSPEPSIA
     Dosage: 40 MG
     Route: 048
     Dates: start: 2008
  5. LEVOTHYROXINE [Concomitant]
     Indication: HYPERTHYROIDISM
     Dosage: 400 MG
     Route: 048
     Dates: start: 1990
  6. LEVOTHYROXINE [Concomitant]
     Dosage: (TABLET) STRENGTH: 175 MCG; DAILY DOSE: 175 MCG
     Route: 048
     Dates: start: 201311
  7. VENTOLIN [Concomitant]
     Indication: PNEUMONIA
     Route: 055
     Dates: start: 201312
  8. GABIPENTIN [Concomitant]
     Indication: RESTLESS LEGS SYNDROME
     Dosage: 2400 MG
     Route: 048
     Dates: start: 2010
  9. MELOXICAM [Concomitant]
     Indication: BACK PAIN
     Route: 048
     Dates: start: 2010
  10. MELOXICAM [Concomitant]
     Indication: ARTHRITIS
  11. LIPITOR [Concomitant]
     Indication: BLOOD CHOLESTEROL INCREASED
     Dosage: 40 MG
     Route: 048
     Dates: start: 2010
  12. METFORMIN [Concomitant]
     Indication: DIABETES MELLITUS
     Dosage: 2000 MG
     Route: 048
     Dates: start: 2009
  13. LISINOPRIL HCTZ [Concomitant]
     Indication: HYPERTENSION
     Route: 048
     Dates: start: 2010
  14. FENOFIBRATE [Concomitant]
     Indication: DIABETES MELLITUS
     Dosage: 160 MG
     Route: 048

REACTIONS (1)
  - Pneumonia [Not Recovered/Not Resolved]
